FAERS Safety Report 9471116 (Version 3)
Quarter: 2014Q1

REPORT INFORMATION
  Report Type: Report from Study
  Country: IT (occurrence: IT)
  Receive Date: 20130822
  Receipt Date: 20140128
  Transmission Date: 20141002
  Serious: Yes (Life-Threatening, Hospitalization)
  Sender: FDA-Public Use
  Company Number: IT-AMGEN-ITACT2013058885

PATIENT
  Age: 58 Year
  Sex: Male

DRUGS (10)
  1. PANITUMUMAB [Suspect]
     Indication: ADENOCARCINOMA GASTRIC
     Dosage: UNK UNK, Q2WK
     Route: 042
     Dates: start: 20110922
  2. TAXOTERE [Concomitant]
     Indication: ADENOCARCINOMA GASTRIC
     Dosage: UNK UNK, Q2WK
     Route: 042
     Dates: start: 20110922
  3. CISPLATINO [Concomitant]
     Indication: ADENOCARCINOMA GASTRIC
     Dosage: UNK UNK, Q2WK
     Route: 042
     Dates: start: 20110922
  4. 5-FU [Concomitant]
     Indication: ADENOCARCINOMA GASTRIC
     Dosage: UNK UNK, Q2WK
     Route: 042
     Dates: start: 20110922
  5. FERROGRAD [Concomitant]
     Dosage: 105 MG, UNK
     Dates: start: 20110927, end: 20111015
  6. DOXICICLINA [Concomitant]
     Dosage: 200 MG, UNK
     Dates: start: 20111006, end: 20111013
  7. CALCID                             /00751501/ [Concomitant]
     Indication: METASTASES TO BONE
     Dosage: 500 MG, UNK
     Route: 048
  8. VITAMIN D                          /00107901/ [Concomitant]
     Indication: METASTASES TO BONE
     Route: 048
  9. DELAKET [Concomitant]
     Indication: HYPERTENSION
     Dosage: 30 MG, UNK
     Route: 048
  10. PANTOP [Concomitant]
     Indication: GASTRITIS PROPHYLAXIS
     Dosage: 20 MG, UNK

REACTIONS (4)
  - Mucosal inflammation [Recovered/Resolved]
  - Jaundice [Unknown]
  - Pyrexia [Recovering/Resolving]
  - Asthenia [Unknown]
